FAERS Safety Report 9075970 (Version 1)
Quarter: 2013Q1

REPORT INFORMATION
  Report Type: Spontaneous
  Country: CA (occurrence: CA)
  Receive Date: 20130130
  Receipt Date: 20130130
  Transmission Date: 20140127
  Serious: Yes (Death, Hospitalization)
  Sender: FDA-Public Use
  Company Number: CA-B.I. PHARMACEUTICALS,INC./RIDGEFIELD-2013-CN-00130CN

PATIENT
  Age: 92 Year
  Sex: Male
  Weight: 91 kg

DRUGS (13)
  1. PRADAX [Suspect]
     Dosage: 220 MG
     Route: 048
  2. LEVAQUIN [Suspect]
     Dosage: 500 MG
     Route: 048
  3. ACETAMINOPHEN [Concomitant]
  4. CENTRUM FORTE [Concomitant]
  5. CRESTOR [Concomitant]
  6. DOCUSATE NOS [Concomitant]
  7. FUROSEMIDE [Concomitant]
  8. GALANTAMINE [Concomitant]
  9. PALAFER [Concomitant]
  10. PARIET [Concomitant]
  11. VITAMIN B12 [Concomitant]
  12. VITAMIN B6 [Concomitant]
  13. VITAMIN D [Concomitant]

REACTIONS (6)
  - Gastrointestinal haemorrhage [Fatal]
  - Blood creatinine increased [Fatal]
  - Depressed level of consciousness [Fatal]
  - Haemoglobin decreased [Fatal]
  - International normalised ratio increased [Fatal]
  - Palliative care [Fatal]
